FAERS Safety Report 13855525 (Version 2)
Quarter: 2018Q4

REPORT INFORMATION
  Report Type: Spontaneous
  Country: US (occurrence: US)
  Receive Date: 20170810
  Receipt Date: 20181010
  Transmission Date: 20190204
  Serious: No
  Sender: FDA-Public Use
  Company Number: US-PFIZER INC-2017344759

PATIENT
  Age: 17 Year
  Sex: Male
  Weight: 55 kg

DRUGS (13)
  1. SYNTHROID [Concomitant]
     Active Substance: LEVOTHYROXINE SODIUM
     Dosage: 75 UG, IN THE MORNING ON AN EMPTY STOMACH
     Route: 048
  2. GENOTROPIN [Suspect]
     Active Substance: SOMATROPIN
     Indication: GROWTH HORMONE DEFICIENCY
     Dosage: 2.6 MG, DAILY
     Dates: start: 20160705
  3. GENOTROPIN [Suspect]
     Active Substance: SOMATROPIN
     Indication: HYPOPITUITARISM
  4. SYNTHROID [Concomitant]
     Active Substance: LEVOTHYROXINE SODIUM
     Dosage: 50 UG, DAILY
  5. LEVOTHROID [Concomitant]
     Active Substance: LEVOTHYROXINE SODIUM
     Dosage: 50 UG, UNK
  6. CORTEFIN [Concomitant]
     Dosage: 5 MG, THREE TIMES DAILY AND DOUBLE DOSE DURING SICK DAYS
     Route: 048
  7. DEPO-TESTOSTERONE [Concomitant]
     Active Substance: TESTOSTERONE CYPIONATE
     Dosage: 0.75 ML, INTO THE MUSCLE EVERY 28 DAYS
     Route: 030
  8. DEPO-TESTOSTERONE [Concomitant]
     Active Substance: TESTOSTERONE CYPIONATE
     Dosage: 150 MG, EVERY 4 WEEKS
  9. CLARITIN [Concomitant]
     Active Substance: LORATADINE
     Indication: HYPERSENSITIVITY
     Dosage: 10 MG, DAILY AS NEEDED
     Route: 048
  10. LEVOTHROID [Concomitant]
     Active Substance: LEVOTHYROXINE SODIUM
     Dosage: 75 UG, IN THE MORNING ON AN EMPTY STOMACH
     Route: 048
  11. ABILIFY PO [Concomitant]
     Dosage: UNK
     Route: 048
  12. SOLU-CORTEF [Concomitant]
     Active Substance: HYDROCORTISONE SODIUM SUCCINATE
     Indication: LETHARGY
     Dosage: 100 MG, UNK
     Route: 030
  13. LEXAPRO [Concomitant]
     Active Substance: ESCITALOPRAM OXALATE
     Dosage: 20 MG, DAILY
     Route: 048

REACTIONS (6)
  - Blood testosterone decreased [Unknown]
  - Bone density decreased [Unknown]
  - Product dose omission [Unknown]
  - Device issue [Unknown]
  - Blood thyroid stimulating hormone decreased [Unknown]
  - Insulin-like growth factor decreased [Unknown]
